FAERS Safety Report 15282976 (Version 1)
Quarter: 2018Q4

REPORT INFORMATION
  Report Type: Spontaneous
  Country: IT (occurrence: IT)
  Receive Date: 20180816
  Receipt Date: 20180816
  Transmission Date: 20190204
  Serious: Yes (Hospitalization)
  Sender: FDA-Public Use
  Company Number: IT-TEVA-2018-IT-929173

PATIENT
  Age: 87 Year
  Sex: Female
  Weight: 60 kg

DRUGS (7)
  1. VASCOMAN 20 MG COMPRESSE [Concomitant]
     Route: 048
  2. CITALOPRAM RATIOPHARM [Suspect]
     Active Substance: CITALOPRAM HYDROBROMIDE
     Dosage: 20 DOSAGE FORMS DAILY;
     Route: 048
     Dates: start: 20180610, end: 20180617
  3. ARIXTRA [Suspect]
     Active Substance: FONDAPARINUX SODIUM
     Indication: THROMBOSIS PROPHYLAXIS
     Dosage: 2.5 DOSAGE FORMS DAILY;
     Route: 058
     Dates: start: 20180614, end: 20180620
  4. PANTORC 20 MG COMPRESSE GASTRORESISTENTI [Concomitant]
     Active Substance: PANTOPRAZOLE SODIUM
     Route: 048
  5. CATAPRESAN TTS-2 5 MG CEROTTI TRANSDERMICI [Concomitant]
     Indication: HYPERTENSION
     Route: 062
  6. MEMANTINE MYLAN 20 MG FILM-COATED TABLETS [Concomitant]
     Active Substance: MEMANTINE
     Indication: SENILE DEMENTIA
     Route: 048
  7. VALPRESSION 160 MG CAPSULE [Concomitant]
     Indication: HYPERTENSION
     Route: 030

REACTIONS (2)
  - Skin reaction [Recovering/Resolving]
  - Blood sodium decreased [Recovering/Resolving]

NARRATIVE: CASE EVENT DATE: 20180617
